FAERS Safety Report 17313807 (Version 1)
Quarter: 2020Q1

REPORT INFORMATION
  Report Type: Spontaneous
  Country: US (occurrence: US)
  Receive Date: 20200107
  Receipt Date: 20200107
  Transmission Date: 20200409
  Serious: Yes (Hospitalization)
  Sender: FDA-Public Use
  Company Number: None

PATIENT
  Age: 76 Year
  Sex: Male

DRUGS (12)
  1. LANTUS INJ 100/ML [Concomitant]
  2. BUDESONIDE CAP 3 MG DR [Concomitant]
  3. HYDRALAZINE TAB 25 MG [Concomitant]
  4. RETACRIT [Suspect]
     Active Substance: EPOETIN ALFA-EPBX
     Indication: ANAEMIA
     Route: 030
     Dates: start: 20191207
  5. LATANOPROST SOL 0.005% [Concomitant]
  6. HUMALOG [Concomitant]
     Active Substance: INSULIN LISPRO
  7. E-40 CAP 400 UNIT [Concomitant]
  8. ELIQUIS TAB 5 MG [Concomitant]
  9. FOLIC ACID TAB 1000 MCG [Concomitant]
  10. DILTIAZEM TAB 60 MG [Concomitant]
  11. POT CHLORIDE TAB 20 MEG ER [Concomitant]
  12. ZOLPIDEM TAB 10 MG [Concomitant]

REACTIONS (1)
  - Gastrointestinal haemorrhage [None]
